FAERS Safety Report 9324006 (Version 2)
Quarter: 2013Q2

REPORT INFORMATION
  Report Type: Spontaneous
  Country: ES (occurrence: ES)
  Receive Date: 20130603
  Receipt Date: 20130620
  Transmission Date: 20140414
  Serious: Yes (Other)
  Sender: FDA-Public Use
  Company Number: ES-SANOFI-AVENTIS-2013SA054383

PATIENT
  Age: 69 Year
  Sex: Female

DRUGS (11)
  1. CICLOCHEM [Suspect]
     Indication: ONYCHOMYCOSIS
     Dosage: NAIL LACQUER 8 % TOPICAL SOLUTION
     Route: 061
     Dates: start: 20111019, end: 20111028
  2. ACENOCOUMAROL [Interacting]
     Indication: ANTICOAGULANT THERAPY
     Route: 048
     Dates: start: 2009
  3. ACENOCOUMAROL [Interacting]
     Indication: ANTICOAGULANT THERAPY
     Route: 048
     Dates: start: 20110906
  4. ACENOCOUMAROL [Interacting]
     Indication: ANTICOAGULANT THERAPY
     Route: 048
     Dates: start: 20110923, end: 20111028
  5. CARVEDILOL [Concomitant]
  6. FUROSEMIDE [Concomitant]
  7. AMIODARONE [Concomitant]
  8. ACETYLSALICYLIC ACID [Concomitant]
  9. FLUVASTATIN [Concomitant]
  10. METFORMIN [Concomitant]
  11. OMEPRAZOLE [Concomitant]

REACTIONS (3)
  - Rectal haemorrhage [Recovered/Resolved]
  - Drug interaction [Unknown]
  - International normalised ratio increased [Recovered/Resolved]
